FAERS Safety Report 5339079-1 (Version None)
Quarter: 2007Q2

REPORT INFORMATION
  Report Type: 
  Country: None (occurrence: None)
  Receive Date: 20070530
  Receipt Date: 20070520
  Transmission Date: 20071010
  Serious: Yes (Other)
  Sender: FDA-Public Use
  Company Number: US-PFIZER INC-2007040777

PATIENT
  Sex: Female
  Weight: 60 kg

DRUGS (3)
  1. CELEBREX [Suspect]
     Indication: BONE PAIN
  2. DEXAMETHASONE 0.5MG TAB [Suspect]
     Indication: MULTIPLE MYELOMA
  3. REVLIMID [Suspect]
     Indication: MULTIPLE MYELOMA

REACTIONS (8)
  - ACCIDENTAL OVERDOSE [None]
  - DISORIENTATION [None]
  - MULTIPLE MYELOMA [None]
  - NASOPHARYNGITIS [None]
  - PNEUMONIA [None]
  - PSYCHOMOTOR HYPERACTIVITY [None]
  - RIB FRACTURE [None]
  - SLEEP DISORDER [None]
